FAERS Safety Report 11869455 (Version 1)
Quarter: 2015Q4

REPORT INFORMATION
  Report Type: Spontaneous
  Country: AT (occurrence: AT)
  Receive Date: 20151227
  Receipt Date: 20151227
  Transmission Date: 20160305
  Serious: Yes (Other)
  Sender: FDA-Public Use
  Company Number: AT-MYLANLABS-2015M1046898

PATIENT

DRUGS (8)
  1. AMPHOCIL [Suspect]
     Active Substance: AMPHOTERICIN B
     Indication: PULMONARY MYCOSIS
     Route: 065
     Dates: start: 201212
  2. AMBISOME [Suspect]
     Active Substance: AMPHOTERICIN B
     Indication: PULMONARY MYCOSIS
     Dosage: 5 MG/KG
     Route: 042
     Dates: start: 201302
  3. ITRACONAZOLE. [Concomitant]
     Active Substance: ITRACONAZOLE
     Indication: PULMONARY MYCOSIS
     Route: 065
  4. VORICONAZOLE. [Suspect]
     Active Substance: VORICONAZOLE
     Route: 048
     Dates: start: 201205
  5. AMPHOTERICIN B. [Suspect]
     Active Substance: AMPHOTERICIN B
     Indication: PULMONARY MYCOSIS
     Route: 050
     Dates: start: 201401
  6. VORICONAZOLE. [Suspect]
     Active Substance: VORICONAZOLE
     Indication: PULMONARY MYCOSIS
     Route: 042
     Dates: start: 201205
  7. VORICONAZOLE. [Suspect]
     Active Substance: VORICONAZOLE
     Route: 042
     Dates: start: 201211
  8. AMBISOME [Suspect]
     Active Substance: AMPHOTERICIN B
     Dosage: 5 MG/KG
     Route: 042
     Dates: start: 201308

REACTIONS (11)
  - Neutropenia [Unknown]
  - Nausea [Unknown]
  - Weight decreased [Unknown]
  - Insomnia [Unknown]
  - Bronchospasm [Unknown]
  - Cough [Unknown]
  - Renal failure [Unknown]
  - Vomiting [Unknown]
  - Leukopenia [Unknown]
  - Pyrexia [Unknown]
  - Dizziness [Unknown]
